FAERS Safety Report 5989551-6 (Version None)
Quarter: 2008Q4

REPORT INFORMATION
  Report Type: 
  Country: None (occurrence: None)
  Receive Date: 20081208
  Receipt Date: 20081125
  Transmission Date: 20090506
  Serious: Yes (Hospitalization)
  Sender: FDA-Public Use
  Company Number: 2008AL012013

PATIENT
  Age: 3 Year
  Sex: Male

DRUGS (2)
  1. IBUPROFEN [Suspect]
     Indication: MALAISE
  2. FEVERALL [Suspect]
     Indication: MALAISE

REACTIONS (13)
  - BLOOD CULTURE POSITIVE [None]
  - CORNEAL DISORDER [None]
  - CORNEAL SCAR [None]
  - DERMATITIS BULLOUS [None]
  - ECTHYMA [None]
  - ESCHAR [None]
  - GENERAL PHYSICAL HEALTH DETERIORATION [None]
  - HERPES SIMPLEX [None]
  - OTITIS MEDIA [None]
  - PSEUDOMONAS INFECTION [None]
  - TACHYPNOEA [None]
  - TOXIC EPIDERMAL NECROLYSIS [None]
  - WOUND [None]
